FAERS Safety Report 5179753-3 (Version None)
Quarter: 2006Q4

REPORT INFORMATION
  Report Type: 
  Country: None (occurrence: None)
  Receive Date: 20061212
  Receipt Date: 20061204
  Transmission Date: 20070319
  Serious: Yes (Hospitalization, Disabling)
  Sender: FDA-Public Use
  Company Number: 2006132590

PATIENT
  Age: 57 Year
  Sex: Male

DRUGS (6)
  1. VIAGRA [Suspect]
     Dosage: ORAL
     Route: 048
  2. AMITRIPTYLINE HCL [Concomitant]
  3. ACETAMINOPHEN [Concomitant]
  4. OMEPRAZOLE [Concomitant]
  5. RAMIPRIL [Concomitant]
  6. ARTHROTEC [Concomitant]

REACTIONS (2)
  - CEREBRAL INFARCTION [None]
  - CEREBROVASCULAR ACCIDENT [None]
